FAERS Safety Report 7512811-4 (Version None)
Quarter: 2011Q2

REPORT INFORMATION
  Report Type: 
  Country: None (occurrence: None)
  Receive Date: 20110531
  Receipt Date: 20110527
  Transmission Date: 20111010
  Serious: Yes (Life-Threatening)
  Sender: FDA-Public Use
  Company Number: D0071257A

PATIENT
  Sex: Female

DRUGS (4)
  1. LAPATINIB [Suspect]
     Dosage: 250MG FIVE TIMES PER DAY
     Route: 065
     Dates: start: 20110120, end: 20110418
  2. VIANI [Concomitant]
     Route: 055
  3. XELODA [Suspect]
     Dosage: 3500MG PER DAY
     Route: 065
     Dates: end: 20110413
  4. THEOPHYLLINE [Suspect]
     Route: 065

REACTIONS (3)
  - COUGH [None]
  - DYSPNOEA [None]
  - ASTHMA [None]
